FAERS Safety Report 5636366-4 (Version None)
Quarter: 2008Q1

REPORT INFORMATION
  Report Type: 
  Country: None (occurrence: None)
  Receive Date: 20080225
  Receipt Date: 20071127
  Transmission Date: 20080703
  Serious: No
  Sender: FDA-Public Use
  Company Number: A0689275A

PATIENT
  Age: 67 Year
  Sex: Male
  Weight: 106.8 kg

DRUGS (1)
  1. VERAMYST [Suspect]
     Indication: MULTIPLE ALLERGIES
     Route: 045
     Dates: start: 20071008, end: 20071017

REACTIONS (2)
  - EPISTAXIS [None]
  - NASAL DRYNESS [None]
